FAERS Safety Report 8971409 (Version 3)
Quarter: 2013Q1

REPORT INFORMATION
  Report Type: Report from Study
  Country: CM (occurrence: CM)
  Receive Date: 20121217
  Receipt Date: 20130218
  Transmission Date: 20140127
  Serious: Yes (Death, Hospitalization, Other)
  Sender: FDA-Public Use
  Company Number: CM-GILEAD-2012-0066277

PATIENT
  Age: 30 Year
  Sex: Male

DRUGS (5)
  1. EMTRICITABINE/TENOFOVIR DISOPROXIL FUMARATE [Suspect]
     Indication: HIV INFECTION
     Dosage: 1 DF, QD
     Route: 048
     Dates: start: 20100619
  2. EMTRICITABINE/TENOFOVIR DISOPROXIL FUMARATE [Suspect]
     Dosage: UNK
     Dates: start: 20121012
  3. DARUNAVIR [Suspect]
     Indication: HIV INFECTION
     Dosage: UNK, QD
     Dates: start: 20100619
  4. RITONAVIR [Suspect]
     Indication: HIV INFECTION
     Dosage: UNK, QD
     Dates: start: 20100619
  5. CO-TRIMOXAZOLE [Suspect]
     Indication: OPPORTUNISTIC INFECTION PROPHYLAXIS
     Dosage: 1 DF, QD
     Dates: start: 2008

REACTIONS (5)
  - Encephalitis [Fatal]
  - Genotype drug resistance test positive [Not Recovered/Not Resolved]
  - Drug ineffective [Not Recovered/Not Resolved]
  - Virologic failure [Fatal]
  - Genotype drug resistance test positive [Not Recovered/Not Resolved]
